FAERS Safety Report 24609458 (Version 1)
Quarter: 2024Q4

REPORT INFORMATION
  Report Type: Spontaneous
  Country: CO (occurrence: CO)
  Receive Date: 20241112
  Receipt Date: 20241112
  Transmission Date: 20250115
  Serious: Yes (Other)
  Sender: SANDOZ
  Company Number: CO-002147023-NVSC2024CO074272

PATIENT
  Age: 72 Year
  Sex: Male
  Weight: 62 kg

DRUGS (3)
  1. EXELON [Suspect]
     Active Substance: RIVASTIGMINE TARTRATE
     Dosage: 1 DOSAGE FORM, QD (18MG) (ONE PATCH A DAY)
     Route: 062
  2. EXELON [Suspect]
     Active Substance: RIVASTIGMINE TARTRATE
     Dosage: 1 DOSAGE FORM, QD 27 MG (ONE PATCH A DAY)
     Route: 062
     Dates: start: 20240801, end: 20241018
  3. EXELON [Suspect]
     Active Substance: RIVASTIGMINE TARTRATE
     Indication: Dementia Alzheimer^s type
     Dosage: UNK, QD (9 MG, 1 PATCH, DAILY)
     Route: 062
     Dates: start: 20231012, end: 20240102

REACTIONS (4)
  - Chronic kidney disease [Not Recovered/Not Resolved]
  - Blood creatinine increased [Not Recovered/Not Resolved]
  - Fluid intake reduced [Unknown]
  - Product availability issue [Recovered/Resolved]

NARRATIVE: CASE EVENT DATE: 20240102
